FAERS Safety Report 8684505 (Version 3)
Quarter: 2013Q3

REPORT INFORMATION
  Report Type: Report from Study
  Country: PL (occurrence: PL)
  Receive Date: 20120726
  Receipt Date: 20130909
  Transmission Date: 20140515
  Serious: Yes (Hospitalization)
  Sender: FDA-Public Use
  Company Number: PL-ASTRAZENECA-2012SE50130

PATIENT
  Age: 19784 Day
  Sex: Male

DRUGS (2)
  1. SYMBICORT PMDI [Suspect]
     Indication: ASTHMA
     Dosage: 160/4.5UG TWO ACTUATIONS BID
     Route: 055
     Dates: start: 20120428, end: 20120711
  2. SERETIDE [Concomitant]
     Indication: ASTHMA
     Route: 055
     Dates: end: 20120427

REACTIONS (1)
  - Colorectal adenocarcinoma [Recovering/Resolving]
